FAERS Safety Report 17011805 (Version 5)
Quarter: 2019Q4

REPORT INFORMATION
  Report Type: Spontaneous
  Country: FR (occurrence: FR)
  Receive Date: 20191108
  Receipt Date: 20191202
  Transmission Date: 20200122
  Serious: Yes (Death, Hospitalization)
  Sender: FDA-Public Use
  Company Number: FR-EISAI MEDICAL RESEARCH-EC-2019-064956

PATIENT
  Age: 17 Year
  Sex: Male
  Weight: 55 kg

DRUGS (8)
  1. FYCOMPA [Suspect]
     Active Substance: PERAMPANEL
     Route: 048
     Dates: start: 20191028, end: 2019
  2. LAMICTAL [Concomitant]
     Active Substance: LAMOTRIGINE
     Dosage: DOSAGE AND FREQUENCY UNKNOWN; DOSAGE WAS DECREASING SINCE THE INTRODUCTION OF FYCOMPA
     Dates: start: 2019
  3. FYCOMPA [Suspect]
     Active Substance: PERAMPANEL
     Indication: PARTIAL SEIZURES
     Route: 048
     Dates: start: 20191019, end: 20191027
  4. DI-HYDAN [Concomitant]
     Active Substance: PHENYTOIN
     Indication: PARTIAL SEIZURES
  5. EPITOMAX [Concomitant]
     Active Substance: TOPIRAMATE
     Indication: PARTIAL SEIZURES
     Dosage: DOSAGE AND FREQUENCY UNKNOWN
     Dates: end: 20191018
  6. URBANYL [Concomitant]
     Active Substance: CLOBAZAM
     Indication: PARTIAL SEIZURES
  7. EPITOMAX [Concomitant]
     Active Substance: TOPIRAMATE
     Dates: start: 20191019
  8. LAMICTAL [Concomitant]
     Active Substance: LAMOTRIGINE
     Indication: EPILEPSY
     Dosage: DOSAGE AND FREQUENCY UNKNOWN
     Dates: end: 2019

REACTIONS (3)
  - Seizure [Recovered/Resolved]
  - Fall [Fatal]
  - Delirium [Fatal]

NARRATIVE: CASE EVENT DATE: 20191029
